FAERS Safety Report 5719780-8 (Version None)
Quarter: 2008Q2

REPORT INFORMATION
  Report Type: 
  Country: None (occurrence: None)
  Receive Date: 20080425
  Receipt Date: 20080425
  Transmission Date: 20081010
  Serious: Yes (Death, Life-Threatening, Hospitalization)
  Sender: FDA-Public Use
  Company Number: None

PATIENT
  Age: 57 Year
  Sex: Male
  Weight: 100 kg

DRUGS (2)
  1. DIVALPROEX SODIUM [Suspect]
     Dates: start: 20070827, end: 20071102
  2. ZIPRASIDONE HCL [Suspect]
     Dates: start: 20071102, end: 20071212

REACTIONS (8)
  - COAGULOPATHY [None]
  - CONFUSIONAL STATE [None]
  - HEPATIC ENCEPHALOPATHY [None]
  - HEPATIC FAILURE [None]
  - RENAL FAILURE CHRONIC [None]
  - SLUGGISHNESS [None]
  - THROMBOCYTOPENIA [None]
  - UPPER GASTROINTESTINAL HAEMORRHAGE [None]
